FAERS Safety Report 7229940-5 (Version None)
Quarter: 2011Q1

REPORT INFORMATION
  Report Type: 
  Country: None (occurrence: None)
  Receive Date: 20110117
  Receipt Date: 20110112
  Transmission Date: 20110831
  Serious: Yes (Hospitalization, Other)
  Sender: FDA-Public Use
  Company Number: IT-ELI_LILLY_AND_COMPANY-IT201011003673

PATIENT
  Sex: Female

DRUGS (6)
  1. HUMALOG [Suspect]
     Dosage: 38 IU, DAILY (1/D)
     Route: 058
     Dates: start: 20090912, end: 20100911
  2. COUMADIN [Concomitant]
     Dosage: 5 MG, UNKNOWN
     Route: 048
     Dates: start: 20090912, end: 20100911
  3. CANRENONE [Concomitant]
     Dates: start: 20090912, end: 20100911
  4. FUROSEMIDE [Concomitant]
     Dates: start: 20090912, end: 20100911
  5. ACTRAPHANE [Concomitant]
     Dosage: 14 IU, DAILY (1/D)
     Route: 058
     Dates: start: 20090912, end: 20100911
  6. CARVEDILOL [Concomitant]
     Dates: start: 20090912, end: 20100911

REACTIONS (3)
  - CARDIOMYOPATHY [None]
  - MITRAL VALVE INCOMPETENCE [None]
  - HYPOGLYCAEMIA [None]
